FAERS Safety Report 17332455 (Version 2)
Quarter: 2020Q1

REPORT INFORMATION
  Report Type: Spontaneous
  Country: US (occurrence: US)
  Receive Date: 20200127
  Receipt Date: 20200303
  Transmission Date: 20200409
  Serious: No
  Sender: FDA-Public Use
  Company Number: US-CELGENEUS-USA-20200108035

PATIENT
  Age: 54 Year
  Sex: Female

DRUGS (1)
  1. OTEZLA [Suspect]
     Active Substance: APREMILAST
     Indication: PSORIASIS
     Dosage: 10MG/20MG/30MG, STARTER PACK
     Route: 048
     Dates: start: 20200116

REACTIONS (1)
  - Bronchial irritation [Recovered/Resolved]

NARRATIVE: CASE EVENT DATE: 20200121
